FAERS Safety Report 6546101-3 (Version None)
Quarter: 2010Q1

REPORT INFORMATION
  Report Type: 
  Country: None (occurrence: None)
  Receive Date: 20100122
  Receipt Date: 20100120
  Transmission Date: 20100710
  Serious: Yes (Death, Hospitalization)
  Sender: FDA-Public Use
  Company Number: US-BIOGENIDEC-2010BI001528

PATIENT
  Age: 62 Year
  Sex: Female

DRUGS (3)
  1. TYSABRI [Suspect]
     Indication: MULTIPLE SCLEROSIS
     Route: 042
     Dates: start: 20080929, end: 20091123
  2. BACLOFEN [Concomitant]
     Route: 037
  3. PAIN MEDICATIONS NOS [Concomitant]
     Indication: PAIN
     Route: 037

REACTIONS (3)
  - DEHYDRATION [None]
  - MALNUTRITION [None]
  - PNEUMONIA ASPIRATION [None]
